FAERS Safety Report 10062703 (Version 1)
Quarter: 2014Q2

REPORT INFORMATION
  Report Type: Spontaneous
  Country: US (occurrence: US)
  Receive Date: 20140407
  Receipt Date: 20140407
  Transmission Date: 20141212
  Serious: Yes (Death, Hospitalization)
  Sender: FDA-Public Use
  Company Number: US-GLAXOSMITHKLINE-A1067493A

PATIENT
  Age: 91 Year
  Sex: Male

DRUGS (3)
  1. AVODART [Suspect]
     Indication: BENIGN PROSTATIC HYPERPLASIA
     Route: 048
  2. UNSPECIFIED MEDICATIONS [Concomitant]
  3. CIPRO [Concomitant]

REACTIONS (4)
  - Death [Fatal]
  - Urinary tract infection [Unknown]
  - Blood urine present [Unknown]
  - Heart rate abnormal [Unknown]
